FAERS Safety Report 5279280-9 (Version None)
Quarter: 2007Q1

REPORT INFORMATION
  Report Type: 
  Country: None (occurrence: None)
  Receive Date: 20070328
  Receipt Date: 20060705
  Transmission Date: 20070707
  Serious: No
  Sender: FDA-Public Use
  Company Number: US-AMGEN-KDL185176

PATIENT
  Sex: Female

DRUGS (4)
  1. NEULASTA [Suspect]
     Indication: CHEMOTHERAPY
     Dates: start: 20050101
  2. PREMARIN [Concomitant]
  3. COUMADIN [Concomitant]
     Dates: start: 20050101
  4. WELLBUTRIN [Concomitant]

REACTIONS (4)
  - DEPRESSION [None]
  - DYSPNOEA [None]
  - FATIGUE [None]
  - NIGHT SWEATS [None]
